FAERS Safety Report 10422961 (Version 1)
Quarter: 2014Q3

REPORT INFORMATION
  Report Type: Spontaneous
  Country: US (occurrence: None)
  Receive Date: 20140709
  Receipt Date: 20140709
  Transmission Date: 20150326
  Serious: Yes (Other)
  Sender: FDA-Public Use
  Company Number: PHEH2013US020984

PATIENT
  Age: 51 Year
  Sex: Female

DRUGS (2)
  1. GLEEVEC [Suspect]
     Active Substance: IMATINIB MESYLATE
     Dates: start: 20100204, end: 20100422
  2. TASIGNA [Concomitant]
     Active Substance: NILOTINIB

REACTIONS (2)
  - Liver disorder [None]
  - Drug-induced liver injury [None]
